FAERS Safety Report 15834128 (Version 1)
Quarter: 2019Q1

REPORT INFORMATION
  Report Type: Report from Study
  Country: US (occurrence: US)
  Receive Date: 20190116
  Receipt Date: 20190116
  Transmission Date: 20190417
  Serious: No
  Sender: FDA-Public Use
  Company Number: PHEH2019US001328

PATIENT
  Sex: Female

DRUGS (1)
  1. COSENTYX [Suspect]
     Active Substance: SECUKINUMAB
     Indication: PSORIATIC ARTHROPATHY
     Dosage: 300 MG, QMO
     Route: 058

REACTIONS (8)
  - Myalgia [Unknown]
  - Nasopharyngitis [Unknown]
  - Mobility decreased [Unknown]
  - Incorrect dose administered [Unknown]
  - Concomitant disease aggravated [Unknown]
  - Dysphonia [Unknown]
  - Emphysema [Unknown]
  - Product administration error [Unknown]
